FAERS Safety Report 15602074 (Version 1)
Quarter: 2018Q4

REPORT INFORMATION
  Report Type: Spontaneous
  Country: US (occurrence: US)
  Receive Date: 20181106
  Receipt Date: 20181106
  Transmission Date: 20190205
  Serious: No
  Sender: FDA-Public Use
  Company Number: None

PATIENT
  Age: 63 Year
  Sex: Female
  Weight: 65.77 kg

DRUGS (1)
  1. LEVETIRACETAM. [Suspect]
     Active Substance: LEVETIRACETAM
     Indication: SEIZURE
     Dosage: ?          QUANTITY:1 TABLET(S);?
     Route: 048
     Dates: start: 20180908, end: 20181005

REACTIONS (8)
  - Paraesthesia oral [None]
  - Tooth disorder [None]
  - Product complaint [None]
  - Insomnia [None]
  - Headache [None]
  - Product substitution issue [None]
  - Neck pain [None]
  - Dizziness [None]

NARRATIVE: CASE EVENT DATE: 20181017
